FAERS Safety Report 7712062-4 (Version None)
Quarter: 2011Q3

REPORT INFORMATION
  Report Type: 
  Country: None (occurrence: None)
  Receive Date: 20110826
  Receipt Date: 20110817
  Transmission Date: 20111222
  Serious: Yes (Hospitalization)
  Sender: FDA-Public Use
  Company Number: PHEH2011US01867

PATIENT
  Sex: Male
  Weight: 81.633 kg

DRUGS (1)
  1. EXJADE [Suspect]
     Indication: HAEMOCHROMATOSIS
     Dosage: 2000 MG, DAILY
     Route: 048
     Dates: start: 20110317

REACTIONS (2)
  - RENAL FAILURE [None]
  - URINARY TRACT INFECTION [None]
